FAERS Safety Report 10039829 (Version 1)
Quarter: 2014Q1

REPORT INFORMATION
  Report Type: Spontaneous
  Country: US (occurrence: US)
  Receive Date: 20140326
  Receipt Date: 20140326
  Transmission Date: 20141002
  Serious: No
  Sender: FDA-Public Use
  Company Number: US-JNJFOC-20140309828

PATIENT
  Age: 67 Year
  Sex: Male
  Weight: 61.24 kg

DRUGS (8)
  1. SANDOZ FENTANYL TRANSDERMAL SYSTEM [Suspect]
     Indication: PAIN
     Route: 062
     Dates: start: 201402, end: 20140313
  2. BENADRYL [Concomitant]
     Indication: SLEEP DISORDER
     Dosage: 12.5 MG TABLET
     Route: 048
     Dates: start: 201402
  3. BENADRYL [Concomitant]
     Indication: PRURITUS
     Dosage: 12.5 MG TABLET
     Route: 048
     Dates: start: 201402
  4. METOPROLOL [Concomitant]
     Indication: HYPERTENSION
     Route: 048
     Dates: start: 201301
  5. DIAZEPAM [Concomitant]
     Indication: ANXIETY
     Dosage: 2 MG TABLET
     Route: 048
  6. DIAZEPAM [Concomitant]
     Indication: MUSCLE SPASMS
     Dosage: 2 MG TABLET
     Route: 048
  7. RANITIDINE [Concomitant]
     Indication: GASTROOESOPHAGEAL REFLUX DISEASE
     Route: 065
     Dates: start: 2013
  8. BACLOFEN [Concomitant]
     Route: 065
     Dates: start: 2009

REACTIONS (8)
  - Abnormal loss of weight [Unknown]
  - Hypotension [Unknown]
  - Weight increased [Unknown]
  - Increased appetite [Unknown]
  - Dizziness [Unknown]
  - Wrong technique in drug usage process [Unknown]
  - Nausea [Unknown]
  - Treatment noncompliance [Unknown]
